FAERS Safety Report 9321444 (Version 1)
Quarter: 2013Q2

REPORT INFORMATION
  Report Type: Spontaneous
  Country: US (occurrence: US)
  Receive Date: 20130531
  Receipt Date: 20130531
  Transmission Date: 20140414
  Serious: Yes (Other)
  Sender: FDA-Public Use
  Company Number: US-PFIZER INC-2013164594

PATIENT
  Sex: Female

DRUGS (2)
  1. NORVASC [Suspect]
  2. ZOLOFT [Suspect]

REACTIONS (3)
  - Road traffic accident [Unknown]
  - Emotional disorder [Unknown]
  - Nervousness [Unknown]
